FAERS Safety Report 10395978 (Version 1)
Quarter: 2014Q1

REPORT INFORMATION
  Report Type: Spontaneous
  Country: US (occurrence: None)
  Receive Date: 20130524
  Receipt Date: 20130524
  Transmission Date: 20141002
  Serious: Yes (Other)
  Sender: FDA-Public Use
  Company Number: PHEH2012US022570

PATIENT
  Age: 53 Year
  Sex: Male
  Weight: 84 kg

DRUGS (18)
  1. GILENYA (FINGOLIMOD) CAPSULE, 0.5MG [Suspect]
     Indication: MULTIPLE SCLEROSIS
     Route: 048
     Dates: start: 20120912, end: 20121213
  2. ABILIFY (ARIPIPRAZOLE) [Concomitant]
  3. DEPAKOTE (VALPROATE SEMISODIUM) [Concomitant]
  4. FLOMAX ^BOEHRINGER INGELHEIM^ (TAMSULOSIN HYDROCHLORIDE) [Concomitant]
  5. GLYBURIDE (GLIBENCLAMIDE) [Concomitant]
  6. LANTUS (INSULIN GLARGINE) [Concomitant]
  7. LIPITOR (ATORVASTATIN CALCIUM) [Concomitant]
  8. METFORMIN [Concomitant]
  9. SEROQUEL (QUETIAPINE FUMARATE) [Concomitant]
  10. VITAMIN D2 (ERGOCALCIFEROL) [Concomitant]
  11. WELLBUTRIN SR (BUPROPION) [Concomitant]
  12. FIORICET (BUTALBITAL, CAFFEINE, PARACETAMOL) [Concomitant]
  13. IMITREX ^CERENEX^ (SUMATRIPTAN SUCCINATE) [Concomitant]
  14. MAXALT (RIZATRIPTAN) [Concomitant]
  15. OXYCODONE [Concomitant]
  16. NITROGLYCERIN (GLYCERYL TRINITRATE) [Concomitant]
  17. OMEPRAZOLE [Concomitant]
  18. AXCEL (PROMETHAZINE (PROMETHAZINE HYDROCHLORIDE) [Concomitant]

REACTIONS (10)
  - Alanine aminotransferase increased [None]
  - Blood glucose increased [None]
  - Areflexia [None]
  - Confusional state [None]
  - Decreased appetite [None]
  - Dizziness [None]
  - Weight decreased [None]
  - Pruritus [None]
  - Aspartate aminotransferase increased [None]
  - Migraine [None]
